FAERS Safety Report 5054004-9 (Version None)
Quarter: 2006Q3

REPORT INFORMATION
  Report Type: 
  Country: None (occurrence: None)
  Receive Date: 20060713
  Receipt Date: 20060706
  Transmission Date: 20061208
  Serious: Yes (Hospitalization)
  Sender: FDA-Public Use
  Company Number: 200610879BYL

PATIENT
  Age: 19 Year
  Sex: Female

DRUGS (3)
  1. AVELOX [Suspect]
     Indication: BRONCHITIS ACUTE
     Dosage: 400 MG, QD, ORAL
     Route: 048
     Dates: start: 20060621, end: 20060624
  2. PL GRANULE [Suspect]
     Indication: BRONCHITIS ACUTE
     Dosage: 3 G, TOTAL DAILY, ORAL
     Route: 048
     Dates: start: 20060619, end: 20060624
  3. CLARITHROMYCIN [Suspect]
     Indication: BRONCHITIS ACUTE
     Dosage: 400 MG, TOTAL DAILY, ORAL
     Route: 048
     Dates: start: 20060621, end: 20060624

REACTIONS (3)
  - EOSINOPHIL COUNT INCREASED [None]
  - PNEUMONIA [None]
  - PYREXIA [None]
